FAERS Safety Report 22002722 (Version 2)
Quarter: 2023Q1

REPORT INFORMATION
  Report Type: Spontaneous
  Country: US (occurrence: US)
  Receive Date: 20230217
  Receipt Date: 20230217
  Transmission Date: 20230418
  Serious: Yes (Other)
  Sender: FDA-Public Use
  Company Number: US-SUN PHARMACEUTICAL INDUSTRIES LTD-2023R1-378212

PATIENT
  Age: 70 Year
  Sex: Female

DRUGS (8)
  1. CETIRIZINE [Suspect]
     Active Substance: CETIRIZINE HYDROCHLORIDE
     Indication: Urticaria chronic
     Dosage: UNK, DAILY
     Route: 065
  2. CETIRIZINE [Suspect]
     Active Substance: CETIRIZINE HYDROCHLORIDE
     Indication: Angioedema
  3. FAMOTIDINE [Suspect]
     Active Substance: FAMOTIDINE
     Indication: Urticaria chronic
     Dosage: UNK, DAILY
     Route: 065
  4. FAMOTIDINE [Suspect]
     Active Substance: FAMOTIDINE
     Indication: Angioedema
  5. FEXOFENADINE [Suspect]
     Active Substance: FEXOFENADINE HYDROCHLORIDE
     Indication: Urticaria chronic
     Dosage: UNK, DAILY
     Route: 065
  6. FEXOFENADINE [Suspect]
     Active Substance: FEXOFENADINE HYDROCHLORIDE
     Indication: Angioedema
  7. EPIPEN [Concomitant]
     Active Substance: EPINEPHRINE
     Indication: Urticaria chronic
     Dosage: UNK (AS NEEDED)
     Route: 065
  8. EPIPEN [Concomitant]
     Active Substance: EPINEPHRINE
     Indication: Angioedema

REACTIONS (2)
  - Therapy non-responder [Unknown]
  - Hyperparathyroidism primary [Recovered/Resolved]
